FAERS Safety Report 4719243-2 (Version None)
Quarter: 2005Q4

REPORT INFORMATION
  Report Type: 
  Country: None (occurrence: None)
  Receive Date: 20050719
  Receipt Date: 20050708
  Transmission Date: 20060501
  Serious: Yes (Other)
  Sender: FDA-Public Use
  Company Number: USA-2005-0020743

PATIENT
  Age: 30 Year
  Sex: Female
  Weight: 22.7 kg

DRUGS (4)
  1. MORPHINE SULFATE [Suspect]
     Indication: PAIN
     Dates: start: 20050518
  2. POSACONAZOLE [Suspect]
     Indication: FUNGAL INFECTION
     Dosage: 20 ML, DAILY, ORAL; SEE IMAGE
     Route: 048
     Dates: start: 20050426, end: 20050519
  3. POSACONAZOLE [Suspect]
     Indication: FUNGAL INFECTION
     Dosage: 20 ML, DAILY, ORAL; SEE IMAGE
     Route: 048
     Dates: end: 20050519
  4. POSACONAZOLE [Suspect]
     Indication: FUNGAL INFECTION
     Dosage: 20 ML, DAILY, ORAL; SEE IMAGE
     Route: 048
     Dates: start: 20050426

REACTIONS (34)
  - ALANINE AMINOTRANSFERASE INCREASED [None]
  - ASPARTATE AMINOTRANSFERASE INCREASED [None]
  - BACTERIA SPUTUM IDENTIFIED [None]
  - BACTERIAL INFECTION [None]
  - BILIRUBIN CONJUGATED INCREASED [None]
  - BLOOD ALBUMIN DECREASED [None]
  - BLOOD ALKALINE PHOSPHATASE INCREASED [None]
  - BLOOD BILIRUBIN INCREASED [None]
  - BLOOD FIBRINOGEN DECREASED [None]
  - BLOOD UREA INCREASED [None]
  - C-REACTIVE PROTEIN INCREASED [None]
  - FIBRIN D DIMER INCREASED [None]
  - GAMMA-GLUTAMYLTRANSFERASE INCREASED [None]
  - HAEMATOCRIT DECREASED [None]
  - HYPERCAPNIA [None]
  - LUNG DISORDER [None]
  - LUNG INFILTRATION [None]
  - LYMPHOCYTE COUNT INCREASED [None]
  - LYMPHOCYTE PERCENTAGE DECREASED [None]
  - MICROSPORUM INFECTION [None]
  - MONOCYTE COUNT INCREASED [None]
  - MONOCYTE PERCENTAGE INCREASED [None]
  - NEUTROPHIL PERCENTAGE DECREASED [None]
  - NODULE [None]
  - PLATELET COUNT DECREASED [None]
  - PLEURITIC PAIN [None]
  - PNEUMONIA [None]
  - PROTEIN TOTAL DECREASED [None]
  - RED BLOOD CELL COUNT DECREASED [None]
  - RED CELL DISTRIBUTION WIDTH INCREASED [None]
  - RESPIRATORY FAILURE [None]
  - RETICULOCYTE COUNT DECREASED [None]
  - WHITE BLOOD CELL COUNT DECREASED [None]
  - ZYGOMYCOSIS [None]
